FAERS Safety Report 13368882 (Version 4)
Quarter: 2018Q2

REPORT INFORMATION
  Report Type: Spontaneous
  Country: US (occurrence: US)
  Receive Date: 20170324
  Receipt Date: 20180615
  Transmission Date: 20180711
  Serious: Yes (Life-Threatening, Hospitalization, Disabling, Other)
  Sender: FDA-Public Use
  Company Number: US-009507513-1703USA010684

PATIENT
  Sex: Female
  Weight: 81.63 kg

DRUGS (3)
  1. VERAPAMIL [Concomitant]
     Active Substance: VERAPAMIL HYDROCHLORIDE
     Indication: SUPRAVENTRICULAR TACHYCARDIA
     Dosage: 120 MG, BID
     Route: 048
     Dates: start: 20140320
  2. NUVARING [Suspect]
     Active Substance: ETHINYL ESTRADIOL\ETONOGESTREL
     Indication: CONTRACEPTION
     Dosage: 1 DF, QM
     Route: 067
     Dates: start: 2013, end: 20140321
  3. VERAPAMIL [Concomitant]
     Active Substance: VERAPAMIL HYDROCHLORIDE
     Indication: TACHYCARDIA
     Dosage: 120 MG, QD
     Route: 048
     Dates: end: 20140320

REACTIONS (51)
  - Urinary retention [Unknown]
  - Asthma [Not Recovered/Not Resolved]
  - Hypomagnesaemia [Unknown]
  - Upper-airway cough syndrome [Unknown]
  - Anaemia [Recovering/Resolving]
  - Chest pain [Not Recovered/Not Resolved]
  - Mitral valve incompetence [Unknown]
  - Dyspnoea [Unknown]
  - Anticoagulation drug level below therapeutic [Recovered/Resolved]
  - Hypersensitivity [Unknown]
  - Palpitations [Unknown]
  - Rhinorrhoea [Unknown]
  - Pyrexia [Unknown]
  - Hypokalaemia [Recovering/Resolving]
  - Tooth disorder [Unknown]
  - Haematochezia [Recovered/Resolved]
  - Postural orthostatic tachycardia syndrome [Recovering/Resolving]
  - Pain [Not Recovered/Not Resolved]
  - Lumbar radiculopathy [Unknown]
  - Menstruation delayed [Unknown]
  - Hypersensitivity [Unknown]
  - Urinary tract infection [Not Recovered/Not Resolved]
  - Bipolar disorder [Unknown]
  - Urinary tract infection [Unknown]
  - Pruritus [Unknown]
  - Unintended pregnancy [Unknown]
  - Abortion spontaneous [Unknown]
  - Atonic urinary bladder [Unknown]
  - Supraventricular tachycardia [Unknown]
  - Anosognosia [Unknown]
  - Anxiety [Unknown]
  - Asthma [Recovering/Resolving]
  - Pulmonary embolism [Unknown]
  - Chest pain [Unknown]
  - Nausea [Unknown]
  - Epistaxis [Unknown]
  - Memory impairment [Unknown]
  - Depression [Not Recovered/Not Resolved]
  - Hyperlipidaemia [Unknown]
  - Gastrooesophageal reflux disease [Unknown]
  - Vaginal haemorrhage [Unknown]
  - Tricuspid valve incompetence [Unknown]
  - Pulmonary valve incompetence [Unknown]
  - Pleural effusion [Recovering/Resolving]
  - Pneumonia [Unknown]
  - Swelling [Unknown]
  - Pain [Unknown]
  - Intervertebral disc protrusion [Not Recovered/Not Resolved]
  - Bronchospasm [Unknown]
  - Endotracheal intubation [Unknown]
  - Munchausen^s syndrome [Unknown]

NARRATIVE: CASE EVENT DATE: 2013
